FAERS Safety Report 18191806 (Version 1)
Quarter: 2020Q3

REPORT INFORMATION
  Report Type: Spontaneous
  Country: US (occurrence: US)
  Receive Date: 20200825
  Receipt Date: 20200825
  Transmission Date: 20201103
  Serious: No
  Sender: FDA-Public Use
  Company Number: US-CIPLA LTD.-2020US04552

PATIENT

DRUGS (21)
  1. LEVOTHYROXINE. [Concomitant]
     Active Substance: LEVOTHYROXINE
     Indication: HYPOTHYROIDISM
     Dosage: 100 MCG, QD (ONCE A DAY)
     Route: 065
  2. METHENAMINE [Concomitant]
     Active Substance: METHENAMINE
     Indication: PRODUCT USED FOR UNKNOWN INDICATION
     Dosage: 1 GRAM, BID (TWICE A DAY), HIP
     Route: 065
  3. SYMBICORT [Concomitant]
     Active Substance: BUDESONIDE\FORMOTEROL FUMARATE DIHYDRATE
     Indication: ASTHMA
     Dosage: 160/4 (UNITS UNSPECIFIED), 2 PUFFS, BID (TWICE A DAY)
     Route: 065
  4. SERTRALINE [Concomitant]
     Active Substance: SERTRALINE HYDROCHLORIDE
     Indication: ASTHMA
     Dosage: 50 MG, UNK (LUPIN PHARMACEUTICALS)
     Route: 065
  5. CALCIUM [Concomitant]
     Active Substance: CALCIUM
     Indication: MINERAL SUPPLEMENTATION
     Dosage: 1200 MILLIGRAM, QD (ONCE A DAY)
     Route: 065
  6. COENZYME Q10 [Concomitant]
     Active Substance: DIETARY SUPPLEMENT\UBIDECARENONE
     Indication: PRODUCT USED FOR UNKNOWN INDICATION
     Dosage: 200 MILLIGRAM, UNK
     Route: 065
  7. MELATONIN [Concomitant]
     Active Substance: MELATONIN
     Indication: SLEEP DISORDER
     Dosage: UNK
     Route: 065
  8. DICLOFENAC [Suspect]
     Active Substance: DICLOFENAC
     Indication: ARTHRALGIA
     Dosage: APPLIED MEDICATION TWICE AT NIGHT, QD
     Route: 061
     Dates: start: 20200622
  9. SIMVASTATIN. [Concomitant]
     Active Substance: SIMVASTATIN
     Indication: BLOOD CHOLESTEROL INCREASED
     Dosage: 40 MG, UNK
     Route: 065
  10. IRON [Concomitant]
     Active Substance: IRON
     Indication: MINERAL SUPPLEMENTATION
     Dosage: 325 MG/65 MG, UNK
     Route: 065
  11. NAPROXEN SODIUM. [Concomitant]
     Active Substance: NAPROXEN SODIUM
     Indication: PRODUCT USED FOR UNKNOWN INDICATION
     Dosage: UNK
     Route: 065
  12. OMEPRAZOLE. [Concomitant]
     Active Substance: OMEPRAZOLE
     Indication: PRODUCT USED FOR UNKNOWN INDICATION
     Dosage: 40 MG, UNK
     Route: 065
  13. AZITHROMYCIN ANHYDROUS. [Concomitant]
     Active Substance: AZITHROMYCIN ANHYDROUS
     Indication: PRODUCT USED FOR UNKNOWN INDICATION
     Dosage: UNK
     Route: 065
     Dates: start: 20200617, end: 20200621
  14. SOLIFENACIN [Concomitant]
     Active Substance: SOLIFENACIN
     Indication: PRODUCT USED FOR UNKNOWN INDICATION
     Dosage: 5 MILLIGRAM, QD (ONCE A DAY)
     Route: 065
  15. VITAMIN C [Concomitant]
     Active Substance: ASCORBIC ACID
     Indication: VITAMIN SUPPLEMENTATION
     Dosage: 500 MILLIGRAM, QD (ONCE A DAY)
     Route: 065
  16. MYRBETRIQ [Concomitant]
     Active Substance: MIRABEGRON
     Indication: PRODUCT USED FOR UNKNOWN INDICATION
     Dosage: 50 MILLIGRAM, QD (ONCE A DAY)
     Route: 065
  17. VITAMIN D3 [Concomitant]
     Active Substance: CHOLECALCIFEROL
     Indication: VITAMIN SUPPLEMENTATION
     Dosage: 125 MCG/ 5000 IU, QD (ONCE A DAY)
     Route: 065
  18. DICLOFENAC [Suspect]
     Active Substance: DICLOFENAC
     Dosage: UNK, APPLIED THRICE, TID
     Route: 061
     Dates: start: 20200623, end: 20200624
  19. LASIX [Suspect]
     Active Substance: FUROSEMIDE
     Indication: OEDEMA
     Dosage: 20 MILLIGRAM, UNK
     Route: 065
     Dates: start: 202006, end: 202006
  20. ETODOLAC. [Concomitant]
     Active Substance: ETODOLAC
     Indication: BACK PAIN
     Dosage: 400 MILLIGRAM, UNK
     Route: 065
  21. DIPHENOXYLATE/ATROPINE [Concomitant]
     Active Substance: ATROPINE\DIPHENOXYLATE
     Indication: DIARRHOEA
     Dosage: 2 DOSAGE FORM, BID (2.5/0.025 2 TABS; TWICE A DAY)
     Route: 065

REACTIONS (5)
  - Rash pruritic [Not Recovered/Not Resolved]
  - Rash [Not Recovered/Not Resolved]
  - Wrong technique in product usage process [Unknown]
  - Rash papular [Not Recovered/Not Resolved]
  - Product use issue [Unknown]

NARRATIVE: CASE EVENT DATE: 20200622
